FAERS Safety Report 4781996-5 (Version None)
Quarter: 2005Q3

REPORT INFORMATION
  Report Type: 
  Country: None (occurrence: None)
  Receive Date: 20050928
  Receipt Date: 20050622
  Transmission Date: 20060218
  Serious: Yes (Hospitalization)
  Sender: FDA-Public Use
  Company Number: US-MERCK-0506USA03312

PATIENT
  Age: 71 Year
  Sex: Female
  Weight: 86 kg

DRUGS (7)
  1. VIOXX [Suspect]
     Indication: ARTHRITIS
     Route: 048
     Dates: start: 20010630, end: 20040930
  2. TRIAMTERENE [Concomitant]
     Route: 065
  3. NORVASC [Concomitant]
     Route: 065
  4. [THERAPY UNSPECIFIED] [Concomitant]
     Route: 065
  5. ZOCOR [Concomitant]
     Route: 065
     Dates: start: 20010810
  6. METHYLDOPA [Concomitant]
     Route: 065
  7. CALCIUM (UNSPECIFIED) [Concomitant]
     Route: 065
     Dates: start: 20000101

REACTIONS (25)
  - ANGINA PECTORIS [None]
  - ATRIAL FIBRILLATION [None]
  - BLOOD CHOLESTEROL INCREASED [None]
  - BURSITIS [None]
  - CARDIAC DISORDER [None]
  - CARPAL TUNNEL SYNDROME [None]
  - DEEP VEIN THROMBOSIS [None]
  - DEPRESSION [None]
  - DILATATION ATRIAL [None]
  - DIVERTICULUM INTESTINAL [None]
  - DRUG INEFFECTIVE [None]
  - ENURESIS [None]
  - HIATUS HERNIA [None]
  - HYPERLIPIDAEMIA [None]
  - INCONTINENCE [None]
  - LUMBAR RADICULOPATHY [None]
  - MITRAL VALVE CALCIFICATION [None]
  - MYOCARDIAL ISCHAEMIA [None]
  - PROCTITIS [None]
  - PULMONARY EMBOLISM [None]
  - ROTATOR CUFF SYNDROME [None]
  - SCOLIOSIS [None]
  - SPINAL COLUMN STENOSIS [None]
  - TRICUSPID VALVE INCOMPETENCE [None]
  - VENTRICULAR HYPERTROPHY [None]
